FAERS Safety Report 7479722-4 (Version None)
Quarter: 2011Q2

REPORT INFORMATION
  Report Type: 
  Country: None (occurrence: None)
  Receive Date: 20110513
  Receipt Date: 20110504
  Transmission Date: 20111010
  Serious: Yes (Hospitalization)
  Sender: FDA-Public Use
  Company Number: US-ASTRAZENECA-2011SE26292

PATIENT
  Age: 41 Year
  Sex: Female
  Weight: 52.2 kg

DRUGS (4)
  1. SEROQUEL XR [Suspect]
     Indication: SCHIZOPHRENIA
     Route: 048
     Dates: start: 20110101, end: 20110416
  2. ZOLOFT [Concomitant]
     Indication: SCHIZOPHRENIA
     Route: 048
     Dates: start: 20110101
  3. ATRIPLA [Concomitant]
     Indication: HIV INFECTION
     Route: 048
     Dates: start: 20110101
  4. CLONAZEPAM [Concomitant]
     Indication: ANXIETY
     Route: 048
     Dates: start: 20110101

REACTIONS (2)
  - DRUG DOSE OMISSION [None]
  - MENTAL DISORDER [None]
